FAERS Safety Report 24958420 (Version 1)
Quarter: 2025Q1

REPORT INFORMATION
  Report Type: Spontaneous
  Country: TR (occurrence: TR)
  Receive Date: 20250212
  Receipt Date: 20250212
  Transmission Date: 20250409
  Serious: Yes (Life-Threatening, Hospitalization, Other)
  Sender: RANBAXY
  Company Number: TR-SUN PHARMACEUTICAL INDUSTRIES LTD-2025R1-492918

PATIENT
  Age: 51 Year
  Sex: Female

DRUGS (4)
  1. PROPRANOLOL [Suspect]
     Active Substance: PROPRANOLOL HYDROCHLORIDE
     Indication: Long QT syndrome
     Dosage: 40 MILLIGRAM, TID
     Route: 065
  2. AMIODARONE [Suspect]
     Active Substance: AMIODARONE
     Indication: Long QT syndrome
     Route: 040
  3. FUROSEMIDE [Suspect]
     Active Substance: FUROSEMIDE
     Indication: Long QT syndrome
     Dosage: 20 MILLIGRAM, TID
     Route: 065
  4. ISOPROTERENOL [Suspect]
     Active Substance: ISOPROTERENOL
     Indication: Long QT syndrome
     Route: 065

REACTIONS (4)
  - Stress cardiomyopathy [Unknown]
  - Ventricular arrhythmia [Recovered/Resolved]
  - Cardiac arrest [Unknown]
  - Disease recurrence [Unknown]
